FAERS Safety Report 17680197 (Version 1)
Quarter: 2020Q2

REPORT INFORMATION
  Report Type: Report from Study
  Country: US (occurrence: US)
  Receive Date: 20200417
  Receipt Date: 20200417
  Transmission Date: 20200714
  Serious: Yes (Other)
  Sender: FDA-Public Use
  Company Number: US-ROCHE-2579929

PATIENT
  Sex: Female

DRUGS (3)
  1. LEVAQUIN [Concomitant]
     Active Substance: LEVOFLOXACIN
  2. ACTEMRA [Suspect]
     Active Substance: TOCILIZUMAB
     Indication: BLEPHARITIS
     Route: 058
  3. DIOVAN [Concomitant]
     Active Substance: VALSARTAN
     Route: 065

REACTIONS (2)
  - Adrenal insufficiency [Unknown]
  - White blood cell count increased [Unknown]
